FAERS Safety Report 8199774-6 (Version None)
Quarter: 2012Q1

REPORT INFORMATION
  Report Type: 
  Country: None (occurrence: None)
  Receive Date: 20120312
  Receipt Date: 20120302
  Transmission Date: 20120608
  Serious: Yes (Hospitalization)
  Sender: FDA-Public Use
  Company Number: US-AMGEN-USASP2012014041

PATIENT
  Age: 59 Year
  Sex: Female

DRUGS (1)
  1. ENBREL [Suspect]
     Indication: RHEUMATOID ARTHRITIS
     Dosage: 50 MG, QWK
     Dates: start: 20031101

REACTIONS (9)
  - OEDEMA PERIPHERAL [None]
  - PNEUMONIA [None]
  - GOUT [None]
  - HYPOAESTHESIA [None]
  - DIZZINESS [None]
  - NAUSEA [None]
  - FALL [None]
  - CONTUSION [None]
  - BRONCHOSCOPY [None]
